FAERS Safety Report 5335230-8 (Version None)
Quarter: 2007Q2

REPORT INFORMATION
  Report Type: 
  Country: None (occurrence: None)
  Receive Date: 20070525
  Receipt Date: 20070515
  Transmission Date: 20071010
  Serious: Yes (Death, Hospitalization)
  Sender: FDA-Public Use
  Company Number: US-PFIZER INC-2006125854

PATIENT
  Sex: Female
  Weight: 90.7 kg

DRUGS (1)
  1. CELEBREX [Suspect]
     Indication: ARTHRITIS
     Route: 048
     Dates: start: 19990501, end: 20010428

REACTIONS (2)
  - PULMONARY EMBOLISM [None]
  - THROMBOSIS [None]
